FAERS Safety Report 10601686 (Version 1)
Quarter: 2014Q4

REPORT INFORMATION
  Report Type: Spontaneous
  Country: US (occurrence: US)
  Receive Date: 20141124
  Receipt Date: 20141124
  Transmission Date: 20150529
  Serious: No
  Sender: FDA-Public Use
  Company Number: US-PFIZER INC-2014319785

PATIENT
  Sex: Female

DRUGS (2)
  1. NICOTROL [Suspect]
     Active Substance: NICOTINE
     Indication: SMOKING CESSATION THERAPY
     Dosage: 4 MG, UNK
  2. OXYGEN. [Concomitant]
     Active Substance: OXYGEN
     Dosage: UNK

REACTIONS (3)
  - Dysgeusia [Not Recovered/Not Resolved]
  - Drug ineffective [Not Recovered/Not Resolved]
  - Dry mouth [Not Recovered/Not Resolved]
